FAERS Safety Report 6939592-7 (Version None)
Quarter: 2010Q3

REPORT INFORMATION
  Report Type: 
  Country: None (occurrence: None)
  Receive Date: 20100820
  Receipt Date: 20100813
  Transmission Date: 20110219
  Serious: Yes (Hospitalization, Other)
  Sender: FDA-Public Use
  Company Number: 017122

PATIENT
  Age: 57 Year
  Sex: Male

DRUGS (1)
  1. KEPPRA [Suspect]
     Indication: EPILEPSY
     Dosage: 500MG BID ORAL
     Route: 048
     Dates: start: 20090927, end: 20100621

REACTIONS (1)
  - ILEUS PARALYTIC [None]
